FAERS Safety Report 25554794 (Version 1)
Quarter: 2025Q3

REPORT INFORMATION
  Report Type: Spontaneous
  Country: US (occurrence: None)
  Receive Date: 20250715
  Receipt Date: 20250715
  Transmission Date: 20251020
  Serious: Yes (Disabling)
  Sender: FDA-CTU
  Company Number: None

PATIENT
  Age: 90 Year
  Sex: Male
  Weight: 76.5 kg

DRUGS (13)
  1. DONEPEZIL [Suspect]
     Active Substance: DONEPEZIL
     Indication: Vascular dementia
     Dosage: 1 TABLET DAILY ORAL
     Route: 048
     Dates: start: 20250606, end: 20250711
  2. MEMANTINE [Suspect]
     Active Substance: MEMANTINE
  3. OMEPRAZOLE [Suspect]
     Active Substance: OMEPRAZOLE
  4. BENADRYL [Suspect]
     Active Substance: DIPHENHYDRAMINE HYDROCHLORIDE
  5. tamsalosin [Concomitant]
  6. FINASTERIDE [Concomitant]
     Active Substance: FINASTERIDE
  7. metaformin [Concomitant]
  8. SIMVASTATIN [Concomitant]
     Active Substance: SIMVASTATIN
  9. ASPIRIN [Concomitant]
     Active Substance: ASPIRIN
  10. MINERALS\VITAMINS [Concomitant]
     Active Substance: MINERALS\VITAMINS
  11. FISH OIL [Concomitant]
     Active Substance: FISH OIL
  12. VITAMIN D NOS [Concomitant]
     Active Substance: CHOLECALCIFEROL\ERGOCALCIFEROL
  13. COENZYME Q10 [Concomitant]
     Active Substance: DIETARY SUPPLEMENT\UBIDECARENONE

REACTIONS (16)
  - Autonomic nervous system imbalance [None]
  - Cerebrovascular accident [None]
  - Myocardial infarction [None]
  - Syncope [None]
  - Muscular weakness [None]
  - Decreased appetite [None]
  - Weight decreased [None]
  - Disorientation [None]
  - Grip strength decreased [None]
  - Headache [None]
  - Neck pain [None]
  - Musculoskeletal stiffness [None]
  - Muscle tightness [None]
  - Aphasia [None]
  - Vomiting [None]
  - Pleurothotonus [None]

NARRATIVE: CASE EVENT DATE: 20250711
